FAERS Safety Report 13030257 (Version 1)
Quarter: 2016Q4

REPORT INFORMATION
  Report Type: Spontaneous
  Country: US (occurrence: US)
  Receive Date: 20161215
  Receipt Date: 20161215
  Transmission Date: 20170207
  Serious: No
  Sender: FDA-Public Use
  Company Number: US-009507513-1612USA003190

PATIENT
  Age: 27 Year
  Sex: Female
  Weight: 49.89 kg

DRUGS (1)
  1. NUVARING [Suspect]
     Active Substance: ETHINYL ESTRADIOL\ETONOGESTREL
     Indication: CONTRACEPTION
     Dosage: 3 WEEKS INSIDE THE VAGINA 1 WEEK BREAK
     Route: 067

REACTIONS (2)
  - Incorrect drug administration duration [Unknown]
  - Abnormal withdrawal bleeding [Unknown]

NARRATIVE: CASE EVENT DATE: 2016
